FAERS Safety Report 4761358-7 (Version None)
Quarter: 2005Q3

REPORT INFORMATION
  Report Type: 
  Country: None (occurrence: None)
  Receive Date: 20050831
  Receipt Date: 20050610
  Transmission Date: 20060218
  Serious: No
  Sender: FDA-Public Use
  Company Number: PHEH2005US06675

PATIENT
  Age: 78 Year
  Sex: Male

DRUGS (5)
  1. ENABLEX [Suspect]
     Indication: HYPERTONIC BLADDER
     Dosage: 15 MQ, QHS
     Dates: start: 20050608
  2. SIMVASTATIN [Concomitant]
  3. TRAVATAN (TRAVOPOST) [Concomitant]
  4. ACETYLSALICYLIC ACID SRT [Concomitant]
  5. VITAMINS (NO INGREDIENTS/SUBSTANCES) [Concomitant]

REACTIONS (2)
  - BLISTER [None]
  - HERPES SIMPLEX [None]
